FAERS Safety Report 7130919-2 (Version None)
Quarter: 2010Q4

REPORT INFORMATION
  Report Type: 
  Country: None (occurrence: None)
  Receive Date: 20101101
  Receipt Date: 20100804
  Transmission Date: 20110411
  Serious: Yes (Other)
  Sender: FDA-Public Use
  Company Number: AMAG201000319

PATIENT
  Age: 26 Year
  Sex: Female

DRUGS (3)
  1. FERAHEME [Suspect]
     Indication: IRON DEFICIENCY ANAEMIA
     Dosage: 75 MG, SINGLE, INTRAVENOUS
     Route: 042
  2. FERROUS SULFATE TAB [Concomitant]
  3. HYOSCYAMINE SULFATE (HYOSCYAMINE SULFATE) [Concomitant]

REACTIONS (6)
  - ANAPHYLACTIC REACTION [None]
  - COUGH [None]
  - LIP SWELLING [None]
  - SWOLLEN TONGUE [None]
  - THROAT IRRITATION [None]
  - WHEEZING [None]
